FAERS Safety Report 9334331 (Version 1)
Quarter: 2013Q2

REPORT INFORMATION
  Report Type: Spontaneous
  Country: US (occurrence: US)
  Receive Date: 20130606
  Receipt Date: 20130606
  Transmission Date: 20140414
  Serious: No
  Sender: FDA-Public Use
  Company Number: US-AMGEN-USASP2013029530

PATIENT
  Sex: Female

DRUGS (7)
  1. PROLIA [Suspect]
     Indication: OSTEOPOROSIS POSTMENOPAUSAL
     Dosage: UNK
  2. VITAMIN D3 [Concomitant]
  3. ZOLPIDEM [Concomitant]
  4. DEXILANT [Concomitant]
  5. ATENOLOL [Concomitant]
     Dosage: 25 UNK, UNK
  6. CALCIUM [Concomitant]
  7. OXYCODONE AND ACETAMINOPHEN [Concomitant]

REACTIONS (2)
  - Pain in jaw [Unknown]
  - Toothache [Unknown]
